FAERS Safety Report 10957787 (Version 1)
Quarter: 2015Q1

REPORT INFORMATION
  Report Type: Spontaneous
  Country: US (occurrence: US)
  Receive Date: 20150326
  Receipt Date: 20150326
  Transmission Date: 20150721
  Serious: Yes (Death, Other)
  Sender: FDA-Public Use
  Company Number: US-BAXTER-2015BAX015494

PATIENT
  Age: 9 Month
  Sex: Female

DRUGS (7)
  1. GAMMAGARD LIQUID [Suspect]
     Active Substance: HUMAN IMMUNOGLOBULIN G
     Indication: PRODUCT USED FOR UNKNOWN INDICATION
     Route: 042
  2. OSELTAMIVIR [Suspect]
     Active Substance: OSELTAMIVIR
     Indication: INFLUENZA
     Route: 065
  3. LEVETIRACETAM. [Suspect]
     Active Substance: LEVETIRACETAM
     Indication: SUPPORTIVE CARE
     Route: 065
  4. METHYLPREDNISOLONE. [Suspect]
     Active Substance: METHYLPREDNISOLONE
     Indication: SUPPORTIVE CARE
     Route: 065
  5. CEFEPIME [Suspect]
     Active Substance: CEFEPIME\CEFEPIME HYDROCHLORIDE
     Indication: SUPPORTIVE CARE
     Route: 042
  6. AMPICILLIN [Suspect]
     Active Substance: AMPICILLIN
     Indication: PNEUMONIA
     Route: 042
  7. VANCOMYCIN INJECTION, USP [Suspect]
     Active Substance: VANCOMYCIN
     Indication: SUPPORTIVE CARE
     Route: 042

REACTIONS (9)
  - Anuria [Unknown]
  - No therapeutic response [Not Recovered/Not Resolved]
  - General physical health deterioration [Unknown]
  - Pulmonary haemorrhage [Unknown]
  - Gastrointestinal haemorrhage [Unknown]
  - Ascites [Unknown]
  - Cardiac arrest [Unknown]
  - Death [Fatal]
  - Disseminated intravascular coagulation [Unknown]
